FAERS Safety Report 17209171 (Version 2)
Quarter: 2020Q4

REPORT INFORMATION
  Report Type: Spontaneous
  Country: AR (occurrence: AR)
  Receive Date: 20191227
  Receipt Date: 20201111
  Transmission Date: 20210113
  Serious: Yes (Other)
  Sender: FDA-Public Use
  Company Number: NVSC2019AR054507

PATIENT
  Sex: Female

DRUGS (3)
  1. TRAVATAN [Suspect]
     Active Substance: TRAVOPROST
     Indication: GLAUCOMA
     Dosage: 1 GTT, QD (10 YEARS AGO APPROXIMATELY, IN NIGHT)
     Route: 065
  2. TRAVATAN [Suspect]
     Active Substance: TRAVOPROST
     Dosage: 1 GTT, QD (6 YEARS AGO)
     Route: 065
  3. TRAVATAN [Suspect]
     Active Substance: TRAVOPROST
     Dosage: 1 GTT, QD (IN NIGHT)
     Route: 065
     Dates: end: 202004

REACTIONS (11)
  - Asthenia [Unknown]
  - Drug ineffective [Not Recovered/Not Resolved]
  - Constipation [Recovered/Resolved]
  - Pain in extremity [Unknown]
  - Pruritus [Not Recovered/Not Resolved]
  - Hypersensitivity [Recovered/Resolved]
  - Suicidal behaviour [Not Recovered/Not Resolved]
  - Hypoacusis [Unknown]
  - Heart rate decreased [Unknown]
  - Heart rate irregular [Unknown]
  - Tinnitus [Recovered/Resolved]
